FAERS Safety Report 7144946-2 (Version None)
Quarter: 2010Q4

REPORT INFORMATION
  Report Type: 
  Country: None (occurrence: None)
  Receive Date: 20101122
  Receipt Date: 20101117
  Transmission Date: 20110411
  Serious: Yes (Death)
  Sender: FDA-Public Use
  Company Number: 2010SP060637

PATIENT
  Age: 49 Year
  Sex: Female
  Weight: 69 kg

DRUGS (7)
  1. DESOGESTREL AND ETHINYL ESTRADIOL [Suspect]
     Indication: PRODUCT USED FOR UNKNOWN INDICATION
     Dosage: 0.15 MG
  2. HEPARIN SODIUM [Suspect]
     Indication: PRODUCT USED FOR UNKNOWN INDICATION
     Dosage: IV
     Route: 042
  3. FERROUS GLUCONATE [Concomitant]
  4. GLYBURIDE [Concomitant]
  5. METOPROLOL TARTRATE [Concomitant]
  6. NITRAPEZAM [Concomitant]
  7. TRIAMTERENE AND HYDROCHLOROTHIAZIDE [Concomitant]

REACTIONS (4)
  - ACCIDENTAL OVERDOSE [None]
  - CEREBRAL HAEMORRHAGE [None]
  - INCORRECT DOSE ADMINISTERED [None]
  - SUPERIOR SAGITTAL SINUS THROMBOSIS [None]
